FAERS Safety Report 19184447 (Version 2)
Quarter: 2021Q2

REPORT INFORMATION
  Report Type: Spontaneous
  Country: US (occurrence: US)
  Receive Date: 20210427
  Receipt Date: 20210503
  Transmission Date: 20210717
  Serious: No
  Sender: FDA-Public Use
  Company Number: US-SA-2021SA135598

PATIENT
  Age: 77 Year
  Sex: Female

DRUGS (2)
  1. DUPIXENT [Suspect]
     Active Substance: DUPILUMAB
     Indication: DERMATITIS ATOPIC
     Dosage: 2 DF, 1X
     Route: 058
     Dates: start: 20210401, end: 20210401
  2. DUPIXENT [Suspect]
     Active Substance: DUPILUMAB
     Indication: ECZEMA
     Dosage: 1 DF, QOW
     Dates: start: 20210415

REACTIONS (7)
  - Eczema [Unknown]
  - Skin exfoliation [Unknown]
  - Drug ineffective [Unknown]
  - Pruritus [Unknown]
  - Incorrect dose administered [Unknown]
  - Dermatitis atopic [Unknown]
  - Scratch [Unknown]

NARRATIVE: CASE EVENT DATE: 202104
